FAERS Safety Report 8998082 (Version 1)
Quarter: 2013Q1

REPORT INFORMATION
  Report Type: Spontaneous
  Country: US (occurrence: US)
  Receive Date: 20130104
  Receipt Date: 20130104
  Transmission Date: 20140127
  Serious: Yes (Other)
  Sender: FDA-Public Use
  Company Number: US-BAYER-2013-000487

PATIENT
  Age: 37 Year
  Sex: Male
  Weight: 97.51 kg

DRUGS (4)
  1. ALKA-SELTZER PLUS COLD SPARKLING ORIGINAL [Suspect]
     Dosage: 2 DF, Q4HR
     Route: 048
     Dates: start: 20121224, end: 20121225
  2. IBUPROFEN [Concomitant]
  3. SALINE WATER [Concomitant]
  4. ANTIBIOTICS [Concomitant]

REACTIONS (3)
  - Pallor [Recovered/Resolved]
  - Hypoaesthesia [Recovered/Resolved]
  - Dyspnoea [Recovered/Resolved]
